FAERS Safety Report 9641626 (Version 3)
Quarter: 2013Q4

REPORT INFORMATION
  Report Type: Spontaneous
  Country: JP (occurrence: JP)
  Receive Date: 20131023
  Receipt Date: 20131112
  Transmission Date: 20140711
  Serious: Yes (Hospitalization)
  Sender: FDA-Public Use
  Company Number: JP-GLAXOSMITHKLINE-B0932683A

PATIENT
  Age: 75 Year
  Sex: Male

DRUGS (8)
  1. SEREVENT 50 DISKUS [Suspect]
     Indication: COUGH
     Dosage: 50MCG TWICE PER DAY
     Route: 055
     Dates: start: 20121226, end: 20130105
  2. SIGMART [Concomitant]
     Dosage: 5MG TWICE PER DAY
     Route: 048
  3. NORVASC [Concomitant]
     Dosage: 2.5MG PER DAY
     Route: 048
  4. BUFFERIN [Concomitant]
     Dosage: 81MG PER DAY
     Route: 048
  5. ALTAT [Concomitant]
     Dosage: 75MG PER DAY
     Route: 048
  6. MYSLEE [Concomitant]
     Dosage: 5MG PER DAY
     Route: 048
  7. MERCAZOLE [Concomitant]
     Route: 065
  8. MEDICON [Concomitant]
     Route: 048

REACTIONS (5)
  - Interstitial lung disease [Recovered/Resolved]
  - Dyspnoea [Unknown]
  - Cough [Unknown]
  - Breath sounds abnormal [Unknown]
  - Chest X-ray abnormal [Unknown]
